FAERS Safety Report 16571638 (Version 2)
Quarter: 2019Q3

REPORT INFORMATION
  Report Type: Spontaneous
  Country: NZ (occurrence: NZ)
  Receive Date: 20190715
  Receipt Date: 20190902
  Transmission Date: 20191004
  Serious: Yes (Other)
  Sender: FDA-Public Use
  Company Number: NZ-ASTRAZENECA-2019SE98807

PATIENT
  Age: 54 Year
  Sex: Male

DRUGS (1)
  1. TICAGRELOR. [Suspect]
     Active Substance: TICAGRELOR
     Indication: ACUTE CORONARY SYNDROME
     Dosage: 90.0MG UNKNOWN
     Route: 048

REACTIONS (4)
  - Nausea [Unknown]
  - Vascular stent thrombosis [Unknown]
  - Pallor [Unknown]
  - Coronary artery occlusion [Unknown]

NARRATIVE: CASE EVENT DATE: 20190706
